FAERS Safety Report 19003756 (Version 1)
Quarter: 2021Q1

REPORT INFORMATION
  Report Type: Spontaneous
  Country: NL (occurrence: NL)
  Receive Date: 20210312
  Receipt Date: 20210312
  Transmission Date: 20210420
  Serious: Yes (Life-Threatening)
  Sender: FDA-Public Use
  Company Number: NL-TEVA-2021-NL-1888108

PATIENT
  Age: 18 Year
  Sex: Male
  Weight: 50 kg

DRUGS (2)
  1. CLARITROMYCINE TABLET 500MG / BRAND NAME NOT SPECIFIED [Suspect]
     Active Substance: CLARITHROMYCIN
     Indication: PRODUCT USED FOR UNKNOWN INDICATION
     Dosage: 500 MILLIGRAM DAILY;
     Dates: start: 20210118, end: 20210213
  2. CLOBAZAM TABLET 10MG / BRAND NAME NOT SPECIFIED [Suspect]
     Active Substance: CLOBAZAM
     Indication: EPILEPSY
     Dosage: 15 MILLIGRAM DAILY; THERAPY END DATE : ASKED BUT UNKNOWN
     Dates: start: 2017

REACTIONS (3)
  - Coma [Not Recovered/Not Resolved]
  - Somnolence [Not Recovered/Not Resolved]
  - Vomiting [Not Recovered/Not Resolved]

NARRATIVE: CASE EVENT DATE: 20210213
